FAERS Safety Report 8325144-3 (Version None)
Quarter: 2012Q2

REPORT INFORMATION
  Report Type: 
  Country: None (occurrence: None)
  Receive Date: 20120501
  Receipt Date: 20120320
  Transmission Date: 20120825
  Serious: No
  Sender: FDA-Public Use
  Company Number: US-ABBOTT-12P-163-0921137-00

PATIENT
  Sex: Female

DRUGS (3)
  1. CREON [Suspect]
     Indication: DYSPEPSIA
  2. CREON [Suspect]
     Indication: IRRITABLE BOWEL SYNDROME
  3. CREON [Suspect]
     Indication: GASTROINTESTINAL DISORDER

REACTIONS (2)
  - ABDOMINAL DISTENSION [None]
  - FLATULENCE [None]
